FAERS Safety Report 5556251-6 (Version None)
Quarter: 2007Q4

REPORT INFORMATION
  Report Type: 
  Country: None (occurrence: None)
  Receive Date: 20071203
  Receipt Date: 20071122
  Transmission Date: 20080405
  Serious: Yes (Other)
  Sender: FDA-Public Use
  Company Number: CHNY2007DE03065

PATIENT
  Age: 60 Year
  Sex: Male
  Weight: 68 kg

DRUGS (6)
  1. LAMISIL [Suspect]
     Indication: TINEA PEDIS
     Dosage: TOPICAL
     Route: 061
     Dates: start: 20070521, end: 20070521
  2. OMEP (OMEPRAZOLE) [Concomitant]
  3. DICLAC (DICLOFENAC SODIUM) [Concomitant]
  4. ALLOPURINOL [Concomitant]
  5. NYSTADERM (NYSTATIN) [Concomitant]
  6. ICHTHOSEPTAL (CHLORAMPHENICOL, ICHTHAMMOL SODIUM) [Concomitant]

REACTIONS (5)
  - HYPERSENSITIVITY [None]
  - MUSCULOSKELETAL PAIN [None]
  - NEURALGIA [None]
  - PSORIASIS [None]
  - VEIN DISORDER [None]
